FAERS Safety Report 16637211 (Version 2)
Quarter: 2019Q3

REPORT INFORMATION
  Report Type: Spontaneous
  Country: US (occurrence: US)
  Receive Date: 20190726
  Receipt Date: 20190826
  Transmission Date: 20191004
  Serious: No
  Sender: FDA-Public Use
  Company Number: US-BAYER-2019-138622

PATIENT
  Age: 65 Year
  Sex: Female

DRUGS (9)
  1. LORATADINE. [Concomitant]
     Active Substance: LORATADINE
  2. DULOXETINE. [Concomitant]
     Active Substance: DULOXETINE
  3. MIRALAX [Suspect]
     Active Substance: POLYETHYLENE GLYCOL 3350
     Dosage: THE WHOLE BOTTLE
     Route: 048
  4. FISH OIL [Concomitant]
     Active Substance: FISH OIL
  5. SERTRALINE [Concomitant]
     Active Substance: SERTRALINE HYDROCHLORIDE
  6. LEUCOVORIN CALCIUM. [Concomitant]
     Active Substance: LEUCOVORIN CALCIUM
  7. LORAZEPAM. [Concomitant]
     Active Substance: LORAZEPAM
  8. VITAMIN D3 [Concomitant]
     Active Substance: CHOLECALCIFEROL
  9. LEVOTHYROXINE. [Concomitant]
     Active Substance: LEVOTHYROXINE

REACTIONS (2)
  - Off label use [Unknown]
  - Product use in unapproved indication [Unknown]

NARRATIVE: CASE EVENT DATE: 2018
